FAERS Safety Report 8483763-8 (Version None)
Quarter: 2012Q3

REPORT INFORMATION
  Report Type: 
  Country: None (occurrence: None)
  Receive Date: 20120703
  Receipt Date: 20120627
  Transmission Date: 20120928
  Serious: No
  Sender: FDA-Public Use
  Company Number: US-BIOGENIDEC-2010BI008964

PATIENT
  Age: 53 Year
  Sex: Female

DRUGS (2)
  1. TYSABRI [Suspect]
     Indication: MULTIPLE SCLEROSIS
     Route: 042
     Dates: start: 20070827
  2. SLEEP AIDS [Concomitant]
     Indication: PRODUCT USED FOR UNKNOWN INDICATION

REACTIONS (18)
  - JOINT DISLOCATION [None]
  - BACK INJURY [None]
  - MUSCLE SPASMS [None]
  - HERPES ZOSTER [None]
  - PHLEBITIS [None]
  - DISLOCATION OF VERTEBRA [None]
  - HYPOAESTHESIA [None]
  - FATIGUE [None]
  - VARICOSE VEIN [None]
  - INTERVERTEBRAL DISC DISORDER [None]
  - FALL [None]
  - INTERVERTEBRAL DISC DISPLACEMENT [None]
  - TEMPERATURE INTOLERANCE [None]
  - RIB FRACTURE [None]
  - MALAISE [None]
  - NECK INJURY [None]
  - BACK PAIN [None]
  - MULTIPLE SCLEROSIS RELAPSE [None]
